FAERS Safety Report 20697153 (Version 1)
Quarter: 2022Q2

REPORT INFORMATION
  Report Type: Spontaneous
  Country: NO (occurrence: NO)
  Receive Date: 20220411
  Receipt Date: 20220411
  Transmission Date: 20220721
  Serious: Yes (Other)
  Sender: FDA-Public Use
  Company Number: NO-AMERICAN REGENT INC-2022000943

PATIENT
  Age: 34 Year
  Sex: Female

DRUGS (2)
  1. FERINJECT [Suspect]
     Active Substance: FERRIC CARBOXYMALTOSE
     Indication: Product used for unknown indication
     Dosage: UNK, FIRST INFUSION
  2. FERINJECT [Suspect]
     Active Substance: FERRIC CARBOXYMALTOSE
     Dosage: UNK, SECOND INFUSION (2 MONTHS LATER)

REACTIONS (4)
  - Colitis [Unknown]
  - Diarrhoea haemorrhagic [Unknown]
  - Large intestinal haemorrhage [Unknown]
  - Abdominal pain upper [Unknown]
